FAERS Safety Report 7232397-1 (Version None)
Quarter: 2011Q1

REPORT INFORMATION
  Report Type: 
  Country: None (occurrence: None)
  Receive Date: 20110107
  Receipt Date: 20101223
  Transmission Date: 20110831
  Serious: Yes (Death, Hospitalization)
  Sender: FDA-Public Use
  Company Number: 2011MA000035

PATIENT
  Age: 49 Year
  Sex: Male

DRUGS (4)
  1. PREV MEDS [Concomitant]
  2. VINORELBINE [Suspect]
     Indication: METASTATIC NEOPLASM
     Dosage: 50 MG;QW;IV
     Route: 042
     Dates: start: 20101119, end: 20101126
  3. CON MEDS [Concomitant]
  4. CISPLATIN [Suspect]
     Indication: METASTATIC NEOPLASM
     Dosage: 150 MG
     Dates: start: 20101120, end: 20101120

REACTIONS (9)
  - THROMBOCYTOPENIA [None]
  - SPINAL FRACTURE [None]
  - BONE MARROW FAILURE [None]
  - PATHOLOGICAL FRACTURE [None]
  - METASTATIC NEOPLASM [None]
  - PLATELET COUNT DECREASED [None]
  - PLEURAL EFFUSION [None]
  - NEUTROPENIA [None]
  - WHITE BLOOD CELL COUNT DECREASED [None]
